FAERS Safety Report 13054708 (Version 1)
Quarter: 2016Q4

REPORT INFORMATION
  Report Type: Spontaneous
  Country: US (occurrence: US)
  Receive Date: 20161222
  Receipt Date: 20161222
  Transmission Date: 20170207
  Serious: Yes (Life-Threatening, Hospitalization, Disabling, Other)
  Sender: FDA-Public Use
  Company Number: None

PATIENT
  Age: 56 Year
  Sex: Male
  Weight: 99.79 kg

DRUGS (3)
  1. MYRBETRIQ [Suspect]
     Active Substance: MIRABEGRON
     Indication: URINARY RETENTION
     Route: 048
     Dates: start: 20160612, end: 20161015
  2. LISINOPRIL. [Concomitant]
     Active Substance: LISINOPRIL
  3. TYLENOL [Concomitant]
     Active Substance: ACETAMINOPHEN

REACTIONS (5)
  - Pneumothorax [None]
  - Local swelling [None]
  - Swelling face [None]
  - Tuberculosis [None]
  - Rift Valley fever [None]

NARRATIVE: CASE EVENT DATE: 20161011
